FAERS Safety Report 9578897 (Version 1)
Quarter: 2013Q4

REPORT INFORMATION
  Report Type: Spontaneous
  Country: US (occurrence: US)
  Receive Date: 20131001
  Receipt Date: 20131001
  Transmission Date: 20140711
  Serious: No
  Sender: FDA-Public Use
  Company Number: US-AMGEN-USASP2013015752

PATIENT
  Sex: Female
  Weight: 81.18 kg

DRUGS (6)
  1. ENBREL [Suspect]
     Indication: PSORIATIC ARTHROPATHY
     Dosage: 50 MG, TWICE A WEEK
     Route: 058
  2. SERTRALINE [Concomitant]
     Dosage: 25 MG, UNK
  3. AMLODIPINE [Concomitant]
     Dosage: 10 MG, UNK
  4. METHOTREXATE [Concomitant]
     Dosage: 200/8ML
  5. DIOVAN [Concomitant]
     Dosage: 160 MG, UNK
  6. FOLIC ACID [Concomitant]
     Dosage: UNK

REACTIONS (3)
  - Therapeutic response decreased [Unknown]
  - Arthritis [Unknown]
  - Psoriasis [Unknown]
